FAERS Safety Report 5061725-0 (Version None)
Quarter: 2006Q3

REPORT INFORMATION
  Report Type: 
  Country: None (occurrence: None)
  Receive Date: 20060720
  Receipt Date: 20060707
  Transmission Date: 20061208
  Serious: Yes (Hospitalization)
  Sender: FDA-Public Use
  Company Number: HQWYE131821DEC04

PATIENT
  Age: 77 Year
  Sex: Female

DRUGS (23)
  1. CORDARONE [Suspect]
     Indication: ATRIAL FIBRILLATION
     Dosage: SEE IMAGE
     Route: 048
     Dates: start: 20041109, end: 20041109
  2. CORDARONE [Suspect]
     Indication: ATRIAL FIBRILLATION
     Dosage: SEE IMAGE
     Route: 048
     Dates: start: 20041110, end: 20041110
  3. CORDARONE [Suspect]
     Indication: ATRIAL FIBRILLATION
     Dosage: SEE IMAGE
     Route: 048
     Dates: start: 20041111, end: 20041111
  4. CORDARONE [Suspect]
     Indication: ATRIAL FIBRILLATION
     Dosage: SEE IMAGE
     Route: 048
     Dates: start: 20041112
  5. ACETAMINOPHEN [Suspect]
     Indication: PAIN IN EXTREMITY
     Dosage: 1000 MG 3X PER 1 DAY ORAL
     Route: 048
     Dates: start: 20041010, end: 20041013
  6. ACETAMINOPHEN [Suspect]
     Indication: PAIN IN EXTREMITY
     Dosage: 1000 MG 3X PER 1 DAY ORAL
     Route: 048
     Dates: start: 20041018
  7. DEPAKENE [Suspect]
     Indication: EPILEPSY
     Dosage: SEE IMAGE
     Dates: start: 20041018, end: 20041101
  8. DEPAKENE [Suspect]
     Indication: EPILEPSY
     Dosage: SEE IMAGE
     Dates: start: 20041102, end: 20041114
  9. DEPAKENE [Suspect]
     Indication: EPILEPSY
     Dosage: SEE IMAGE
     Dates: start: 20041115, end: 20041115
  10. DEPAKENE [Suspect]
     Indication: EPILEPSY
     Dosage: SEE IMAGE
     Dates: start: 20041114, end: 20041117
  11. DEPAKENE [Suspect]
     Indication: EPILEPSY
     Dosage: SEE IMAGE
     Dates: start: 20041116, end: 20041217
  12. DEPAKENE [Suspect]
     Indication: EPILEPSY
     Dosage: SEE IMAGE
     Dates: start: 20041218
  13. PAROXETINE HYDROCHLORIDE [Suspect]
     Indication: DEPRESSION
     Dosage: 20 MG 1X PER 1 DAY ORAL
     Route: 048
     Dates: start: 20041018
  14. FONZYLANE (BUFLOMEDIL HYDROCHLORIDE,) [Suspect]
     Dosage: 450 MG 1X PER 1 DAY ORAL
     Route: 048
     Dates: start: 20041018
  15. OMEPRAZOLE [Suspect]
     Dosage: 20 MG 1X PER 1 DAY ORAL
     Route: 048
     Dates: start: 20041018
  16. PLAVIX [Concomitant]
  17. PLAVIX [Concomitant]
  18. QUINAPRIL HCL [Concomitant]
  19. QUINAPRIL HCL [Concomitant]
  20. DUPHALAC [Concomitant]
  21. DUPHALAC [Concomitant]
  22. INSULIN [Concomitant]
  23. NEURONTIN [Concomitant]

REACTIONS (6)
  - CONDITION AGGRAVATED [None]
  - DRUG LEVEL BELOW THERAPEUTIC [None]
  - EXTRAPYRAMIDAL DISORDER [None]
  - IATROGENIC INJURY [None]
  - PARKINSONISM [None]
  - PROTEIN TOTAL DECREASED [None]
